FAERS Safety Report 11584842 (Version 1)
Quarter: 2015Q4

REPORT INFORMATION
  Report Type: Spontaneous
  Country: US (occurrence: US)
  Receive Date: 20151001
  Receipt Date: 20151001
  Transmission Date: 20160304
  Serious: No
  Sender: FDA-Public Use
  Company Number: US-ASTRAZENECA-2015SE91965

PATIENT
  Age: 77 Year
  Sex: Female
  Weight: 54.9 kg

DRUGS (9)
  1. MULTIVITAMINS WOMEN OVER 40 OR 50 [Concomitant]
     Route: 048
     Dates: start: 2014
  2. CRESTOR [Suspect]
     Active Substance: ROSUVASTATIN CALCIUM
     Indication: ANGIOPATHY
     Dosage: 10 MG EVERY OTHER DAY
     Route: 048
     Dates: start: 201501, end: 201508
  3. FOSAMAX [Concomitant]
     Active Substance: ALENDRONATE SODIUM
     Indication: OSTEOPOROSIS
     Route: 048
     Dates: start: 20150914
  4. BABY ASPIRIN [Concomitant]
     Active Substance: ASPIRIN
     Indication: PRODUCT USED FOR UNKNOWN INDICATION
     Route: 048
     Dates: start: 201412
  5. CRESTOR [Suspect]
     Active Substance: ROSUVASTATIN CALCIUM
     Indication: BLOOD CHOLESTEROL INCREASED
     Dosage: 10 MG EVERY THIRD DAY
     Route: 048
     Dates: start: 201508
  6. TURMERIC BY NEW CHAPTER [Concomitant]
     Indication: ANTIINFLAMMATORY THERAPY
     Route: 048
     Dates: start: 2014
  7. CALCIUM + VITAMIN D BY NEW CHAPTER [Concomitant]
     Indication: BLOOD CALCIUM ABNORMAL
     Route: 048
     Dates: start: 2014
  8. CRESTOR [Suspect]
     Active Substance: ROSUVASTATIN CALCIUM
     Indication: BLOOD CHOLESTEROL INCREASED
     Dosage: 10 MG EVERY OTHER DAY
     Route: 048
     Dates: start: 201501, end: 201508
  9. CRESTOR [Suspect]
     Active Substance: ROSUVASTATIN CALCIUM
     Indication: ANGIOPATHY
     Dosage: 10 MG EVERY THIRD DAY
     Route: 048
     Dates: start: 201508

REACTIONS (7)
  - Bone pain [Unknown]
  - Intentional product misuse [Unknown]
  - Arthralgia [Unknown]
  - Muscular weakness [Unknown]
  - Off label use [Unknown]
  - Osteoporosis [Unknown]
  - Tremor [None]

NARRATIVE: CASE EVENT DATE: 2015
